FAERS Safety Report 5925827-6 (Version None)
Quarter: 2008Q3

REPORT INFORMATION
  Report Type: 
  Country: None (occurrence: None)
  Receive Date: 20080923
  Receipt Date: 20070724
  Transmission Date: 20090109
  Serious: Yes (Hospitalization)
  Sender: FDA-Public Use
  Company Number: WAES 0703USA02132

PATIENT
  Age: 60 Year
  Sex: Female
  Weight: 106.1417 kg

DRUGS (1)
  1. VYTORIN [Suspect]
     Indication: LOW DENSITY LIPOPROTEIN INCREASED
     Dosage: 10-80 MG/DAILY/PO
     Route: 048
     Dates: start: 20060823, end: 20070205

REACTIONS (4)
  - ADVERSE EVENT [None]
  - BLOOD CREATINE PHOSPHOKINASE INCREASED [None]
  - LIVER FUNCTION TEST ABNORMAL [None]
  - MYALGIA [None]
